FAERS Safety Report 8800930 (Version 1)
Quarter: 2012Q4

REPORT INFORMATION
  Report Type: 
  Country: DE (occurrence: DE)
  Receive Date: 20120920
  Receipt Date: 20120920
  Transmission Date: 20130627
  Serious: Yes (Congenital Anomaly)
  Sender: FDA-Public Use
  Company Number: DE-ROCHE-1133534

PATIENT

DRUGS (8)
  1. RITUXIMAB [Suspect]
     Indication: SYSTEMIC LUPUS ERYTHEMATOSUS
     Route: 064
  2. ADVAGRAF [Suspect]
     Indication: SYSTEMIC LUPUS ERYTHEMATOSUS
     Dosage: Last dose of mother 20/Mar/2012
     Route: 064
  3. TOREM [Suspect]
     Indication: NEPHROTIC SYNDROME
     Route: 064
  4. TOREM [Suspect]
     Indication: GLOMERULONEPHRITIS MEMBRANOUS
  5. QUENSYL [Suspect]
     Indication: SYSTEMIC LUPUS ERYTHEMATOSUS
     Route: 064
  6. INEGY [Suspect]
     Indication: HYPERCHOLESTEROLAEMIA
     Dosage: Last dose of mother on 20/Mar/2012
     Route: 064
  7. DELIX [Suspect]
     Indication: NEPHROTIC SYNDROME
     Dosage: Last dose of mother was 20/Mar/2012
     Route: 064
  8. DELIX [Suspect]
     Indication: GLOMERULONEPHRITIS MEMBRANOUS

REACTIONS (4)
  - Ventricular septal defect [Recovered/Resolved]
  - Truncus arteriosus persistent [Not Recovered/Not Resolved]
  - Abortion induced [None]
  - Maternal drugs affecting foetus [None]
